FAERS Safety Report 6308141-9 (Version None)
Quarter: 2009Q3

REPORT INFORMATION
  Report Type: 
  Country: None (occurrence: None)
  Receive Date: 20090807
  Receipt Date: 20090724
  Transmission Date: 20100115
  Serious: No
  Sender: FDA-Public Use
  Company Number: 8049374

PATIENT
  Age: 18 Year
  Sex: Male

DRUGS (2)
  1. KEPPRA [Suspect]
     Indication: CONVULSION
     Dosage: 500 MG /D PO
     Route: 048
  2. METHYLPHENIDATE HCL [Concomitant]

REACTIONS (3)
  - AGGRESSION [None]
  - EXCESSIVE MASTURBATION [None]
  - WRONG TECHNIQUE IN DRUG USAGE PROCESS [None]
